FAERS Safety Report 5326237-5 (Version None)
Quarter: 2007Q2

REPORT INFORMATION
  Report Type: 
  Country: None (occurrence: None)
  Receive Date: 20070509
  Receipt Date: 20070424
  Transmission Date: 20071010
  Serious: Yes (Other)
  Sender: FDA-Public Use
  Company Number: B0467415A

PATIENT
  Age: 36 Year
  Sex: Female
  Weight: 70.6 kg

DRUGS (2)
  1. AMOXICILLIN TRIHYDRATE [Suspect]
     Indication: INFECTION PROPHYLAXIS
  2. LOXOPROFEN (FORMULATION UNKNOWN) (LOXOPROFEN) [Suspect]
     Indication: PAIN

REACTIONS (7)
  - ALANINE AMINOTRANSFERASE INCREASED [None]
  - ALTERED STATE OF CONSCIOUSNESS [None]
  - ASPARTATE AMINOTRANSFERASE INCREASED [None]
  - BLOOD ALKALINE PHOSPHATASE INCREASED [None]
  - BLOOD LACTATE DEHYDROGENASE INCREASED [None]
  - GAMMA-GLUTAMYLTRANSFERASE INCREASED [None]
  - HYPOGLYCAEMIA [None]
